FAERS Safety Report 7953144-1 (Version None)
Quarter: 2011Q4

REPORT INFORMATION
  Report Type: 
  Country: None (occurrence: None)
  Receive Date: 20111201
  Receipt Date: 20111124
  Transmission Date: 20120403
  Serious: Yes (Other)
  Sender: FDA-Public Use
  Company Number: NZ-ALLERGAN-1115092US

PATIENT
  Sex: Female

DRUGS (3)
  1. ALPHAGAN P [Concomitant]
     Indication: PRODUCT USED FOR UNKNOWN INDICATION
     Dosage: 2 GTT, BID
     Route: 047
  2. KETOROLAC TROMETHAMINE [Suspect]
     Indication: CONJUNCTIVITIS
     Dosage: 2 GTT, TID
     Route: 047
  3. KETOROLAC TROMETHAMINE [Suspect]
     Indication: TRABECULOPLASTY
     Dosage: 2 GTT, QD
     Route: 047

REACTIONS (12)
  - OEDEMA PERIPHERAL [None]
  - NECK PAIN [None]
  - ASTHENIA [None]
  - ARTHRALGIA [None]
  - EYE INFLAMMATION [None]
  - FATIGUE [None]
  - TERMINAL INSOMNIA [None]
  - EXERCISE TOLERANCE DECREASED [None]
  - DYSPNOEA [None]
  - PAIN [None]
  - MUSCULAR WEAKNESS [None]
  - ACTIVITIES OF DAILY LIVING IMPAIRED [None]
